FAERS Safety Report 23747615 (Version 1)
Quarter: 2024Q2

REPORT INFORMATION
  Report Type: Spontaneous
  Country: US (occurrence: None)
  Receive Date: 20240415
  Receipt Date: 20240415
  Transmission Date: 20240716
  Serious: No
  Sender: FDA-Public Use
  Company Number: None

PATIENT
  Age: 52 Year
  Sex: Female

DRUGS (1)
  1. EMGALITY [Suspect]
     Active Substance: GALCANEZUMAB-GNLM
     Indication: Migraine with aura
     Dosage: OTHER QUANTITY : 2 TOT;?OTHER FREQUENCY : EVERY 4 WEEKS;?
     Route: 058
     Dates: start: 20240319, end: 20240319

REACTIONS (5)
  - Lip swelling [None]
  - Throat tightness [None]
  - Rash [None]
  - Rash [None]
  - Burning sensation [None]

NARRATIVE: CASE EVENT DATE: 20240319
